FAERS Safety Report 23640517 (Version 2)
Quarter: 2024Q2

REPORT INFORMATION
  Report Type: Spontaneous
  Country: JP (occurrence: JP)
  Receive Date: 20240318
  Receipt Date: 20240510
  Transmission Date: 20240717
  Serious: Yes (Other)
  Sender: FDA-Public Use
  Company Number: JP-TAKEDA-2024TJP003949

PATIENT
  Age: 86 Year
  Sex: Male
  Weight: 49 kg

DRUGS (13)
  1. FEIBA NF [Suspect]
     Active Substance: ANTI-INHIBITOR COAGULANT COMPLEX
     Indication: Haemostasis
     Dosage: 5000 INTERNATIONAL UNIT, BID
     Route: 041
     Dates: start: 20240313, end: 20240320
  2. FEIBA NF [Suspect]
     Active Substance: ANTI-INHIBITOR COAGULANT COMPLEX
     Dosage: 5000 INTERNATIONAL UNIT, QD
     Route: 041
     Dates: start: 20240321, end: 20240324
  3. PREDONINE [Suspect]
     Active Substance: PREDNISOLONE
     Indication: Acquired haemophilia
     Dosage: 50 MILLIGRAM, QD
     Route: 048
     Dates: start: 20240312, end: 20240319
  4. PREDONINE [Suspect]
     Active Substance: PREDNISOLONE
     Dosage: 30 MILLIGRAM, QD
     Route: 048
     Dates: start: 20240320
  5. VONOPRAZAN FUMARATE [Concomitant]
     Active Substance: VONOPRAZAN FUMARATE
     Indication: Gastrooesophageal reflux disease
     Dosage: 20 MILLIGRAM, QD
     Route: 048
  6. SULFAMETHOXAZOLE\TRIMETHOPRIM [Concomitant]
     Active Substance: SULFAMETHOXAZOLE\TRIMETHOPRIM
     Indication: Infection prophylaxis
     Dosage: 1 DOSAGE FORM, QD
     Route: 048
     Dates: start: 20240314
  7. FLUCONAZOLE [Concomitant]
     Active Substance: FLUCONAZOLE
     Indication: Infection prophylaxis
     Dosage: 100 MILLIGRAM, QD
     Route: 048
     Dates: start: 20240314
  8. OLMESARTAN [Concomitant]
     Active Substance: OLMESARTAN
     Indication: Hypertension
     Dosage: 20 MILLIGRAM, QD
     Route: 048
  9. PITAVASTATIN CALCIUM [Concomitant]
     Active Substance: PITAVASTATIN CALCIUM
     Indication: Dyslipidaemia
     Dosage: 1 MILLIGRAM, QD
     Route: 048
  10. ELDECALCITOL [Concomitant]
     Active Substance: ELDECALCITOL
     Indication: Osteoporosis
     Dosage: 0.75 MICROGRAM, QD
     Route: 048
  11. NOVORAPID [Concomitant]
     Active Substance: INSULIN ASPART
     Indication: Type 2 diabetes mellitus
     Dosage: 4 INTERNATIONAL UNIT, TID
     Route: 058
  12. TRESIBA [Concomitant]
     Active Substance: INSULIN DEGLUDEC
     Indication: Type 2 diabetes mellitus
     Dosage: 7 INTERNATIONAL UNIT, QD
     Route: 058
  13. ADONA [Concomitant]
     Dosage: UNK
     Route: 065
     Dates: end: 20240322

REACTIONS (1)
  - Fibrin D dimer increased [Recovering/Resolving]

NARRATIVE: CASE EVENT DATE: 20240314
